FAERS Safety Report 14255986 (Version 2)
Quarter: 2017Q4

REPORT INFORMATION
  Report Type: Spontaneous
  Country: CN (occurrence: CN)
  Receive Date: 20171206
  Receipt Date: 20171207
  Transmission Date: 20180321
  Serious: Yes (Other)
  Sender: FDA-Public Use
  Company Number: CN-PFIZER INC-2017518665

PATIENT
  Age: 79 Year
  Sex: Female
  Weight: 60 kg

DRUGS (2)
  1. LIPITOR [Suspect]
     Active Substance: ATORVASTATIN CALCIUM
     Indication: CEREBRAL INFARCTION
     Dosage: 40 MG, 1X/DAY
     Route: 048
     Dates: start: 20170811, end: 20170814
  2. NBP (BUTYLPHTHALIDE) [Suspect]
     Active Substance: BUTYLPHTHALIDE
     Indication: CEREBRAL INFARCTION
     Dosage: 0.2 G, 3X/DAY
     Route: 048
     Dates: start: 20170811, end: 20170814

REACTIONS (2)
  - Blood bilirubin increased [Unknown]
  - Hepatic function abnormal [Unknown]

NARRATIVE: CASE EVENT DATE: 20170814
